FAERS Safety Report 9149239 (Version 1)
Quarter: 2013Q1

REPORT INFORMATION
  Report Type: Spontaneous
  Country: US (occurrence: US)
  Receive Date: 20130308
  Receipt Date: 20130308
  Transmission Date: 20140127
  Serious: No
  Sender: FDA-Public Use
  Company Number: US-BAYER-2013-029559

PATIENT
  Age: 52 Year
  Sex: Male
  Weight: 102 kg

DRUGS (4)
  1. BETASERON [Suspect]
     Dosage: 0.25 MG, QOD
     Route: 058
  2. CYMBALTA [Concomitant]
     Dosage: 30 MG, UNK
  3. AMBIEN [Concomitant]
     Dosage: 10 MG, UNK
  4. VITAMIN D [Concomitant]
     Dosage: 400 U, UNK

REACTIONS (3)
  - Injection site reaction [Unknown]
  - Injection site pain [Unknown]
  - Injection site haemorrhage [Unknown]
